FAERS Safety Report 17127303 (Version 1)
Quarter: 2019Q4

REPORT INFORMATION
  Report Type: Spontaneous
  Country: US (occurrence: US)
  Receive Date: 20191114
  Receipt Date: 20191114
  Transmission Date: 20200122
  Serious: No
  Sender: FDA-Public Use
  Company Number: None

PATIENT
  Age: 61 Year
  Sex: Female

DRUGS (1)
  1. GRANIX [Suspect]
     Active Substance: TBO-FILGRASTIM
     Indication: BREAST CANCER
     Dosage: ?          OTHER DOSE:.8ML;?
     Route: 058
     Dates: start: 20191105

REACTIONS (2)
  - Neuropathy peripheral [None]
  - Epistaxis [None]

NARRATIVE: CASE EVENT DATE: 20191105
